FAERS Safety Report 8918118 (Version 1)
Quarter: 2012Q4

REPORT INFORMATION
  Report Type: 
  Country: CA (occurrence: CA)
  Receive Date: 20121120
  Receipt Date: 20121120
  Transmission Date: 20130627
  Serious: Yes (Death, Hospitalization)
  Sender: FDA-Public Use
  Company Number: PHBS2000CA04265

PATIENT
  Age: 67 Year
  Sex: Female

DRUGS (1)
  1. EXELON [Suspect]
     Dosage: 1.5 mg, BID
     Dates: start: 20000628

REACTIONS (4)
  - Gangrene [Fatal]
  - Infection [Not Recovered/Not Resolved]
  - Pneumonia [Unknown]
  - Dyspnoea [Recovered/Resolved]
